FAERS Safety Report 9886225 (Version 1)
Quarter: 2014Q1

REPORT INFORMATION
  Report Type: Spontaneous
  Country: DE (occurrence: DE)
  Receive Date: 20140210
  Receipt Date: 20140210
  Transmission Date: 20141002
  Serious: Yes (Hospitalization)
  Sender: FDA-Public Use
  Company Number: DE-BAYER-2014-016232

PATIENT
  Age: 62 Year
  Sex: Female
  Weight: 79 kg

DRUGS (1)
  1. PRIMOVIST [Suspect]
     Dosage: 10 ML

REACTIONS (7)
  - Asthma [Recovered/Resolved]
  - Lip oedema [Recovered/Resolved]
  - Oral discomfort [Recovered/Resolved]
  - Dyspnoea [Recovered/Resolved]
  - Bronchospasm [Recovered/Resolved]
  - Blood pressure decreased [Recovered/Resolved]
  - Wheezing [Recovered/Resolved]
